FAERS Safety Report 25425016 (Version 1)
Quarter: 2025Q2

REPORT INFORMATION
  Report Type: Spontaneous
  Country: IT (occurrence: IT)
  Receive Date: 20250611
  Receipt Date: 20250611
  Transmission Date: 20250717
  Serious: Yes (Hospitalization)
  Sender: NOVARTIS
  Company Number: IT-002147023-NVSC2025IT064845

PATIENT
  Sex: Male
  Weight: 7.6 kg

DRUGS (6)
  1. ZOLGENSMA [Suspect]
     Active Substance: ONASEMNOGENE ABEPARVOVEC-XIOI
     Indication: Spinal muscular atrophy
     Route: 042
     Dates: start: 20250108, end: 20250108
  2. ZOLGENSMA [Suspect]
     Active Substance: ONASEMNOGENE ABEPARVOVEC-XIOI
     Route: 042
     Dates: start: 20250225, end: 20250225
  3. OMEPRAZOLE [Concomitant]
     Active Substance: OMEPRAZOLE
     Indication: Prophylaxis
     Dosage: 5 UG, QD
     Route: 065
     Dates: start: 20250107, end: 20250401
  4. METHYLPREDNISOLONE [Concomitant]
     Active Substance: METHYLPREDNISOLONE
     Indication: Product used for unknown indication
     Route: 065
     Dates: start: 20250411, end: 20250415
  5. ESOMEPRAZOLE [Concomitant]
     Active Substance: ESOMEPRAZOLE
     Indication: Abdominal pain
     Route: 065
     Dates: start: 20250224
  6. VITAMIN D [Concomitant]
     Active Substance: VITAMIN D NOS
     Indication: Supplementation therapy
     Route: 065
     Dates: start: 20250224

REACTIONS (4)
  - Transaminases increased [Recovering/Resolving]
  - Aspartate aminotransferase increased [Recovered/Resolved]
  - Alanine aminotransferase increased [Recovered/Resolved]
  - Blood bilirubin increased [Recovered/Resolved]

NARRATIVE: CASE EVENT DATE: 20250324
